FAERS Safety Report 5070161-2 (Version None)
Quarter: 2006Q3

REPORT INFORMATION
  Report Type: 
  Country: None (occurrence: None)
  Receive Date: 20060802
  Receipt Date: 20060802
  Transmission Date: 20061208
  Serious: Yes (Other)
  Sender: FDA-Public Use
  Company Number: None

PATIENT
  Age: 22 Year
  Sex: Female

DRUGS (2)
  1. COPPERTONE SPORT LOTION (SPF 50) LOTION [Suspect]
     Indication: PROPHYLAXIS
     Dosage: TOPICAL
     Route: 061
     Dates: start: 20060711, end: 20060711
  2. COPPERTONE SPORT LOTION (SPF 50) LOTION [Suspect]
     Indication: SUNBURN
     Dosage: TOPICAL
     Route: 061
     Dates: start: 20060711, end: 20060711

REACTIONS (14)
  - APPLICATION SITE BURN [None]
  - APPLICATION SITE VESICLES [None]
  - BURNS FIRST DEGREE [None]
  - BURNS SECOND DEGREE [None]
  - BURNS THIRD DEGREE [None]
  - CAUSTIC INJURY [None]
  - CRYING [None]
  - DISCOMFORT [None]
  - ERYTHEMA [None]
  - INFECTION [None]
  - RASH PUSTULAR [None]
  - SKIN EXFOLIATION [None]
  - SUNBURN [None]
  - WOUND SECRETION [None]
